FAERS Safety Report 11372380 (Version 1)
Quarter: 2015Q3

REPORT INFORMATION
  Report Type: Spontaneous
  Country: US (occurrence: US)
  Receive Date: 20150811
  Receipt Date: 20150811
  Transmission Date: 20151125
  Serious: No
  Sender: FDA-Public Use
  Company Number: US-ELI_LILLY_AND_COMPANY-US201305010050

PATIENT
  Sex: Male

DRUGS (1)
  1. AXIRON [Suspect]
     Active Substance: TESTOSTERONE
     Indication: BLOOD TESTOSTERONE DECREASED
     Dosage: UNK, QD
     Route: 050
     Dates: start: 201205

REACTIONS (4)
  - Asthenia [Unknown]
  - Drug dose omission [Unknown]
  - Anger [Unknown]
  - Depressed mood [Unknown]

NARRATIVE: CASE EVENT DATE: 201305
